FAERS Safety Report 8054916 (Version 2)
Quarter: 2012Q4

REPORT INFORMATION
  Report Type: 
  Country: US (occurrence: US)
  Receive Date: 20110726
  Receipt Date: 20120920
  Transmission Date: 20130627
  Serious: Yes (Hospitalization)
  Sender: FDA-Public Use
  Company Number: US-GLAXOSMITHKLINE-A0923614A

PATIENT
  Age: 61 Year
  Sex: Male
  Weight: 79 kg

DRUGS (3)
  1. AVANDAMET [Suspect]
     Indication: DIABETES MELLITUS
     Route: 048
     Dates: start: 20040328, end: 20100121
  2. AVANDARYL [Suspect]
     Indication: DIABETES MELLITUS
     Route: 048
     Dates: start: 20040328, end: 20100121
  3. AVANDIA [Suspect]
     Dosage: 2MG Twice per day
     Route: 048

REACTIONS (3)
  - Myocardial infarction [Recovering/Resolving]
  - Cardiac failure congestive [Unknown]
  - Ischaemic cardiomyopathy [Unknown]
